FAERS Safety Report 5764801-X (Version None)
Quarter: 2008Q2

REPORT INFORMATION
  Report Type: 
  Country: None (occurrence: None)
  Receive Date: 20080609
  Receipt Date: 20080609
  Transmission Date: 20081010
  Serious: Yes (Other)
  Sender: FDA-Public Use
  Company Number: None

PATIENT
  Sex: Female
  Weight: 53.5244 kg

DRUGS (3)
  1. ALENDRONATE (GENERIC) [Suspect]
     Indication: OSTEOPOROSIS
     Dosage: 70 MG PO
     Route: 048
     Dates: start: 20080101, end: 20080321
  2. LOVASTATIN [Concomitant]
  3. ACIPHEX [Concomitant]

REACTIONS (2)
  - EYE PAIN [None]
  - PHARMACEUTICAL PRODUCT COMPLAINT [None]
